FAERS Safety Report 23940501 (Version 1)
Quarter: 2024Q2

REPORT INFORMATION
  Report Type: Spontaneous
  Country: JP (occurrence: JP)
  Receive Date: 20240605
  Receipt Date: 20240605
  Transmission Date: 20240717
  Serious: Yes (Death)
  Sender: FDA-Public Use
  Company Number: JP-NBI-BJ202407558

PATIENT
  Age: 73 Year
  Sex: Male

DRUGS (3)
  1. OFEV [Suspect]
     Active Substance: NINTEDANIB
     Indication: Idiopathic pulmonary fibrosis
     Route: 048
     Dates: end: 20240501
  2. OFEV [Suspect]
     Active Substance: NINTEDANIB
     Route: 048
     Dates: start: 20240502, end: 20240503
  3. LASCUFLOXACIN HYDROCHLORIDE [Suspect]
     Active Substance: LASCUFLOXACIN HYDROCHLORIDE
     Indication: Pyrexia
     Route: 048
     Dates: start: 20240502

REACTIONS (11)
  - Death [Fatal]
  - Pyrexia [Not Recovered/Not Resolved]
  - Abdominal pain [Not Recovered/Not Resolved]
  - Oedema peripheral [Not Recovered/Not Resolved]
  - Insomnia [Not Recovered/Not Resolved]
  - Pyrexia [Not Recovered/Not Resolved]
  - Abdominal pain [Not Recovered/Not Resolved]
  - Oedema peripheral [Not Recovered/Not Resolved]
  - Decreased appetite [Unknown]
  - Oral mucosa erosion [Unknown]
  - Ageusia [Unknown]

NARRATIVE: CASE EVENT DATE: 20240502
